FAERS Safety Report 19649608 (Version 1)
Quarter: 2021Q3

REPORT INFORMATION
  Report Type: Spontaneous
  Country: TW (occurrence: TW)
  Receive Date: 20210803
  Receipt Date: 20210803
  Transmission Date: 20211014
  Serious: Yes (Death, Other)
  Sender: FDA-Public Use
  Company Number: TW-009507513-2107TWN008267

PATIENT
  Sex: Male
  Weight: 55.9 kg

DRUGS (1)
  1. SITAGLIPTIN PHOSPHATE (+) METFORMIN HYDROCHLORIDE [Suspect]
     Active Substance: METFORMIN HYDROCHLORIDE\SITAGLIPTIN PHOSPHATE
     Dosage: UNK
     Route: 048
     Dates: start: 20210525, end: 20210723

REACTIONS (7)
  - Acute respiratory failure [Unknown]
  - Acute kidney injury [Unknown]
  - Septic shock [Fatal]
  - Hepatic encephalopathy [Unknown]
  - Upper gastrointestinal haemorrhage [Unknown]
  - Lactic acidosis [Fatal]
  - Pneumonia aspiration [Unknown]
